FAERS Safety Report 15368296 (Version 7)
Quarter: 2018Q4

REPORT INFORMATION
  Report Type: Report from Study
  Country: US (occurrence: US)
  Receive Date: 20180910
  Receipt Date: 20181205
  Transmission Date: 20190204
  Serious: Yes (Hospitalization)
  Sender: FDA-Public Use
  Company Number: US-ACTELION-A-NJ2018-176392

PATIENT
  Age: 55 Year
  Sex: Female
  Weight: 67.12 kg

DRUGS (4)
  1. VELETRI [Suspect]
     Active Substance: EPOPROSTENOL
     Dosage: 16 NG/KG, PER MIN
     Route: 042
  2. VELETRI [Suspect]
     Active Substance: EPOPROSTENOL
     Dosage: 18.8 NG/KG, PER MIN
     Route: 042
  3. VELETRI [Suspect]
     Active Substance: EPOPROSTENOL
     Indication: PULMONARY HYPERTENSION
     Dosage: 20 NG/KG, PER MIN
     Route: 042
  4. LETAIRIS [Concomitant]
     Active Substance: AMBRISENTAN

REACTIONS (17)
  - Probiotic therapy [Unknown]
  - Diarrhoea [Unknown]
  - Asthenia [Not Recovered/Not Resolved]
  - Dehydration [Unknown]
  - Clostridium difficile infection [Unknown]
  - Blood pressure decreased [Unknown]
  - Nausea [Unknown]
  - Muscle atrophy [Unknown]
  - Unresponsive to stimuli [Unknown]
  - Headache [Unknown]
  - Bedridden [Not Recovered/Not Resolved]
  - Adverse event [Unknown]
  - Device alarm issue [Unknown]
  - Loss of consciousness [Unknown]
  - Malaise [Unknown]
  - Weight decreased [Unknown]
  - Abdominal discomfort [Unknown]

NARRATIVE: CASE EVENT DATE: 20181102
